FAERS Safety Report 5302942-1 (Version None)
Quarter: 2007Q2

REPORT INFORMATION
  Report Type: 
  Country: None (occurrence: None)
  Receive Date: 20070417
  Receipt Date: 20070417
  Transmission Date: 20071010
  Serious: No
  Sender: FDA-Public Use
  Company Number: None

PATIENT
  Age: 45 Year
  Sex: Female
  Weight: 52.1637 kg

DRUGS (2)
  1. OGEN 2.5 [Suspect]
     Indication: HYSTERECTOMY
     Dosage: ONCE DAILY PO
     Route: 048
     Dates: start: 20000612, end: 20051215
  2. OGEN 2.5 [Suspect]
     Indication: OOPHORECTOMY BILATERAL
     Dosage: ONCE DAILY PO
     Route: 048
     Dates: start: 20000612, end: 20051215

REACTIONS (14)
  - ANAEMIA MACROCYTIC [None]
  - AUTOIMMUNE DISORDER [None]
  - BIOPSY LIVER [None]
  - BIOPSY LUNG [None]
  - FOOT OPERATION [None]
  - GASTROENTERITIS [None]
  - HORMONE LEVEL ABNORMAL [None]
  - INADEQUATE ANALGESIA [None]
  - KNEE OPERATION [None]
  - NERVOUS SYSTEM DISORDER [None]
  - PAIN [None]
  - ROTATOR CUFF REPAIR [None]
  - SARCOIDOSIS [None]
  - SURGERY [None]
